FAERS Safety Report 6722868-6 (Version None)
Quarter: 2010Q2

REPORT INFORMATION
  Report Type: 
  Country: None (occurrence: None)
  Receive Date: 20100512
  Receipt Date: 20100512
  Transmission Date: 20101027
  Serious: No
  Sender: FDA-Public Use
  Company Number: None

PATIENT
  Age: 58 Year
  Sex: Female
  Weight: 79.3795 kg

DRUGS (8)
  1. LIDOCAINE [Suspect]
     Indication: FIBROMYALGIA
     Dosage: UP TO 3 DAILY TRANSDERMAL
     Route: 062
     Dates: start: 20100318, end: 20100328
  2. SYNTHROID [Concomitant]
  3. ATENOLOL [Concomitant]
  4. SEVELLA [Concomitant]
  5. ALENDRONATE [Concomitant]
  6. AMANTADINE HCL [Concomitant]
  7. CLONAZEPAM [Concomitant]
  8. OMEPRAZOLE [Concomitant]

REACTIONS (1)
  - DRUG INEFFECTIVE [None]
